FAERS Safety Report 6516276-0 (Version None)
Quarter: 2009Q4

REPORT INFORMATION
  Report Type: 
  Country: None (occurrence: None)
  Receive Date: 20091223
  Receipt Date: 20091218
  Transmission Date: 20100525
  Serious: Yes (Life-Threatening, Hospitalization)
  Sender: FDA-Public Use
  Company Number: JP-ROCHE-664061

PATIENT
  Sex: Female
  Weight: 56 kg

DRUGS (4)
  1. HERCEPTIN [Suspect]
     Indication: BREAST CANCER METASTATIC
     Route: 041
     Dates: start: 20090731, end: 20090731
  2. HERCEPTIN [Suspect]
     Route: 041
     Dates: start: 20090821, end: 20090821
  3. TAXOTERE [Suspect]
     Indication: BREAST CANCER METASTATIC
     Route: 042
     Dates: start: 20090427, end: 20090710
  4. ENDOXAN [Suspect]
     Indication: BREAST CANCER METASTATIC
     Route: 042
     Dates: start: 20090427, end: 20090710

REACTIONS (2)
  - DISSEMINATED INTRAVASCULAR COAGULATION [None]
  - INFUSION RELATED REACTION [None]
